APPROVED DRUG PRODUCT: DORYX
Active Ingredient: DOXYCYCLINE HYCLATE
Strength: EQ 80MG BASE
Dosage Form/Route: TABLET, DELAYED RELEASE;ORAL
Application: N050795 | Product #004
Applicant: MAYNE PHARMA INTERNATIONAL PTY LTD
Approved: Apr 11, 2013 | RLD: Yes | RS: No | Type: RX

PATENTS:
Patent 8715724 | Expires: Feb 3, 2028